FAERS Safety Report 8761360 (Version 1)
Quarter: 2012Q4

REPORT INFORMATION
  Report Type: 
  Country: US (occurrence: US)
  Receive Date: 20120830
  Receipt Date: 20120830
  Transmission Date: 20130627
  Serious: Yes (Hospitalization, Other)
  Sender: FDA-Public Use
  Company Number: US-009507513-0705USA04136

PATIENT

DRUGS (17)
  1. FOSAMAX [Suspect]
     Indication: OSTEITIS DEFORMANS
     Dosage: 10 mg, qd
     Route: 048
     Dates: start: 1997, end: 20070226
  2. FOSAMAX [Suspect]
     Dosage: 40 mg, qam
     Route: 048
     Dates: start: 19970808
  3. FELDENE [Concomitant]
     Indication: OSTEOARTHRITIS
     Dosage: 20 mg, qam
  4. TYLENOL WITH CODEINE #3 [Concomitant]
     Indication: MUSCLE SPASMS
     Dosage: 1-2, q4h PRN
     Dates: start: 19940810
  5. TYLENOL WITH CODEINE #3 [Concomitant]
     Indication: INTERVERTEBRAL DISC DEGENERATION
  6. FLEXERIL [Concomitant]
     Indication: MUSCLE SPASMS
     Dosage: 10 mg, tid prn
     Route: 048
     Dates: start: 19940810
  7. FLEXERIL [Concomitant]
     Indication: INTERVERTEBRAL DISC DEGENERATION
  8. ZANTAC [Concomitant]
     Indication: GASTROOESOPHAGEAL REFLUX DISEASE
     Dosage: 150 mg, bid
     Route: 048
  9. DIURETIC (UNSPECIFIED) [Concomitant]
     Indication: HYPERTENSION
     Dosage: UNK, qd
  10. TENEX [Concomitant]
     Indication: HYPERTENSION
     Dosage: 1 mg, qam
  11. VANCENASE AQ [Concomitant]
     Indication: RHINITIS ALLERGIC
     Dosage: 84 Microgram, 1-2 sprays
     Route: 045
  12. GUANFACINE HYDROCHLORIDE [Concomitant]
     Indication: HYPERTENSION
     Dosage: 1 mg, qam
  13. PRILOSEC [Concomitant]
     Indication: GASTROOESOPHAGEAL REFLUX DISEASE
     Dosage: 20 mg, qam
  14. CLARITIN [Concomitant]
     Indication: RHINITIS ALLERGIC
     Dosage: 10 mg, qam
     Route: 048
     Dates: start: 19980305
  15. COZAAR [Concomitant]
     Indication: HYPERTENSION
  16. XENICAL [Concomitant]
     Indication: OBESITY
     Dosage: 120 mg, tid
  17. NEURONTIN [Concomitant]
     Indication: CERVICAL SPINAL STENOSIS
     Dosage: 300 mg, tid
     Dates: end: 20020522

REACTIONS (63)
  - Arthropathy [Unknown]
  - Knee arthroplasty [Unknown]
  - None [Unknown]
  - Back disorder [Unknown]
  - Lumbar spinal stenosis [Unknown]
  - Renal failure chronic [Not Recovered/Not Resolved]
  - Osteonecrosis of jaw [Unknown]
  - Osteomyelitis [Not Recovered/Not Resolved]
  - Lethargy [Unknown]
  - None [Unknown]
  - Hyperlipidaemia [Unknown]
  - Somnolence [Unknown]
  - Pulpitis dental [Unknown]
  - Periodontitis [Not Recovered/Not Resolved]
  - Dental necrosis [Unknown]
  - Exostosis of jaw [Unknown]
  - Actinomycosis [Unknown]
  - Jaw disorder [Unknown]
  - Arthritis [Unknown]
  - Sialoadenitis [Unknown]
  - Dementia Alzheimer^s type [Unknown]
  - Aortic aneurysm [Unknown]
  - Bone disorder [Unknown]
  - Gastrointestinal disorder [Unknown]
  - Cataract [Unknown]
  - Glaucoma [Unknown]
  - Hypertensive nephropathy [Not Recovered/Not Resolved]
  - Transient ischaemic attack [Unknown]
  - Radicular cyst [Unknown]
  - Diverticulum intestinal [Unknown]
  - Urinary tract infection [Unknown]
  - Seborrhoeic keratosis [Unknown]
  - Dermal cyst [Unknown]
  - Arthropathy [Unknown]
  - Sacroiliitis [Unknown]
  - Spinal osteoarthritis [Unknown]
  - Intervertebral disc degeneration [Unknown]
  - Post laminectomy syndrome [Unknown]
  - Spinal column stenosis [Unknown]
  - Sciatica [Unknown]
  - Radiculitis lumbosacral [Unknown]
  - Spinal disorder [Unknown]
  - Osteitis deformans [Unknown]
  - Pain [Unknown]
  - Paraesthesia [Unknown]
  - Chest pain [Unknown]
  - Fatigue [Not Recovered/Not Resolved]
  - Herpes simplex [Unknown]
  - Insomnia [Unknown]
  - Depression [Unknown]
  - Renal cyst [Unknown]
  - Weight increased [Unknown]
  - Borderline glaucoma [Unknown]
  - Hysterectomy [Unknown]
  - Mouth ulceration [Unknown]
  - Back pain [Unknown]
  - Pain in extremity [Unknown]
  - Muscle spasms [Unknown]
  - Dizziness [Unknown]
  - Malaise [Unknown]
  - Vomiting [Unknown]
  - None [Unknown]
  - Drug ineffective [Unknown]
